FAERS Safety Report 18389407 (Version 3)
Quarter: 2021Q1

REPORT INFORMATION
  Report Type: Report from Study
  Country: CA (occurrence: CA)
  Receive Date: 20201015
  Receipt Date: 20210311
  Transmission Date: 20210419
  Serious: Yes (Death, Other)
  Sender: FDA-Public Use
  Company Number: CA-CELGENEUS-CAN-20201001984

PATIENT
  Age: 71 Year
  Sex: Male
  Weight: 87 kg

DRUGS (21)
  1. SYNTHROID [Concomitant]
     Active Substance: LEVOTHYROXINE SODIUM
     Indication: HYPOTHYROIDISM
     Route: 065
     Dates: start: 2014, end: 20201022
  2. ECASA 81 MG [Concomitant]
     Indication: THROMBOSIS PROPHYLAXIS
     Route: 065
     Dates: start: 2014, end: 20201022
  3. PANTOLOC [Concomitant]
     Active Substance: PANTOPRAZOLE SODIUM
     Indication: PROPHYLAXIS
     Route: 065
     Dates: start: 2014, end: 20201022
  4. LENALIDOMIDE [Suspect]
     Active Substance: LENALIDOMIDE
     Indication: PLASMA CELL MYELOMA
     Dosage: 15 MILLIGRAM
     Route: 048
     Dates: start: 20140508, end: 20141210
  5. PAMIDRONATE MONTHLY [Concomitant]
     Indication: PROPHYLAXIS
     Route: 065
     Dates: start: 2014, end: 20200623
  6. CYTARABIN [Concomitant]
     Active Substance: CYTARABINE
     Indication: CHEMOTHERAPY
     Route: 039
     Dates: start: 20201019, end: 20201027
  7. ACYCLOVIR. [Concomitant]
     Active Substance: ACYCLOVIR
     Indication: ANTIVIRAL PROPHYLAXIS
     Route: 065
     Dates: start: 20131214, end: 20201019
  8. METHOTREXATE. [Concomitant]
     Active Substance: METHOTREXATE
     Indication: CHEMOTHERAPY
     Route: 041
     Dates: start: 20201021, end: 20201027
  9. BUSULFAN. [Suspect]
     Active Substance: BUSULFAN
     Indication: PLASMA CELL MYELOMA
     Dosage: 246 MILLIGRAM
     Route: 041
     Dates: start: 20131211, end: 20131213
  10. ECASA 81 MG [Concomitant]
     Indication: ANTICOAGULANT THERAPY
  11. VINBLASTIN [Concomitant]
     Active Substance: VINBLASTINE
     Indication: CHEMOTHERAPY
     Route: 041
     Dates: start: 20201019, end: 20201027
  12. DOXORUBICIN [Concomitant]
     Active Substance: DOXORUBICIN
     Indication: CHEMOTHERAPY
     Route: 041
     Dates: start: 20201019, end: 20201027
  13. LENALIDOMIDE [Suspect]
     Active Substance: LENALIDOMIDE
     Dosage: 10 MILLIGRAM
     Route: 048
     Dates: start: 20141211, end: 20200722
  14. MELPHALAN. [Suspect]
     Active Substance: MELPHALAN
     Indication: PLASMA CELL MYELOMA
     Dosage: 290 MILLIGRAM
     Route: 041
     Dates: start: 20131215, end: 20131215
  15. PAMIDRONATE MONTHLY [Concomitant]
     Indication: BONE DISORDER
  16. CARBACOL D [Concomitant]
     Indication: BONE DISORDER
     Route: 065
     Dates: start: 2014, end: 20201015
  17. LENALIDOMIDE [Suspect]
     Active Substance: LENALIDOMIDE
     Dosage: 15 MILLIGRAM
     Route: 048
     Dates: start: 20140424, end: 20200623
  18. LENALIDOMIDE [Suspect]
     Active Substance: LENALIDOMIDE
     Dosage: 10 MILLIGRAM
     Route: 048
     Dates: start: 20200623, end: 20200804
  19. ALLOPURINOL. [Concomitant]
     Active Substance: ALLOPURINOL
     Indication: GOUT
     Route: 065
     Dates: start: 20201015
  20. LEUCOVORIN. [Concomitant]
     Active Substance: LEUCOVORIN
     Indication: CHEMOTHERAPY
     Route: 041
     Dates: start: 20201022, end: 20201027
  21. VITAMIN B12 [Concomitant]
     Active Substance: CYANOCOBALAMIN
     Indication: MULTI-VITAMIN DEFICIENCY
     Dosage: 1200 MICROGRAM
     Route: 065
     Dates: start: 202009, end: 20201027

REACTIONS (2)
  - Sepsis [Fatal]
  - B precursor type acute leukaemia [Fatal]

NARRATIVE: CASE EVENT DATE: 20201006
